FAERS Safety Report 22621915 (Version 1)
Quarter: 2023Q2

REPORT INFORMATION
  Report Type: Spontaneous
  Country: GB (occurrence: GB)
  Receive Date: 20230620
  Receipt Date: 20230620
  Transmission Date: 20230721
  Serious: Yes (Other)
  Sender: FDA-Public Use
  Company Number: None

PATIENT
  Age: 96 Year
  Sex: Female
  Weight: 64 kg

DRUGS (12)
  1. AMLODIPINE [Suspect]
     Active Substance: AMLODIPINE BESYLATE
     Indication: Blood pressure abnormal
     Dosage: 5 MILLIGRAM, QD
     Route: 048
     Dates: start: 20220404, end: 20230609
  2. AMITRIPTYLINE HYDROCHLORIDE [Concomitant]
     Active Substance: AMITRIPTYLINE HYDROCHLORIDE
     Dosage: 1 DOSAGE FORM, QD (NIGHT)
     Route: 065
     Dates: start: 20220913, end: 20230413
  3. UMECLIDINIUM BROMIDE\VILANTEROL TRIFENATATE [Concomitant]
     Active Substance: UMECLIDINIUM BROMIDE\VILANTEROL TRIFENATATE
     Dosage: 1 DOSAGE FORM, QD
     Route: 055
     Dates: start: 20230404
  4. ASPIRIN [Concomitant]
     Active Substance: ASPIRIN
     Dosage: 1 DOSAGE FORM, QD MORNING
     Route: 065
     Dates: start: 20220404
  5. ATORVASTATIN [Concomitant]
     Active Substance: ATORVASTATIN
     Indication: Blood cholesterol abnormal
     Dosage: 1 DOSAGE FORM, QD NIGHT
     Route: 065
     Dates: start: 20220404
  6. BIMATOPROST [Concomitant]
     Active Substance: BIMATOPROST
     Dosage: 1 GTT DROPS, QD (NIGHT INTO BOTH EYES)
     Route: 065
     Dates: start: 20201125, end: 20230413
  7. DULOXETINE [Concomitant]
     Active Substance: DULOXETINE
     Dosage: 1 DOSAGE FORM, QD (NIGHT)
     Route: 065
     Dates: start: 20210125, end: 20230413
  8. GABAPENTIN [Concomitant]
     Active Substance: GABAPENTIN
     Dosage: 1 DOSAGE FORM, TID (PREVENT NEUROPAT...)
     Route: 065
     Dates: start: 20220106
  9. HYLO FORTE [Concomitant]
     Dosage: UNK (BOTH EYES FOUR TIMES A DA, AS NECESSARY. DISCARD...)
     Route: 047
     Dates: start: 20220106
  10. LATANOPROST [Concomitant]
     Active Substance: LATANOPROST
     Dosage: 1 GTT DROPS, QD, EVENING (BOTH EYES)
     Route: 047
     Dates: start: 20211115, end: 20230413
  11. METFORMIN [Concomitant]
     Active Substance: METFORMIN HYDROCHLORIDE
     Dosage: 1 DOSAGE FORM, QD
     Route: 065
     Dates: start: 20220404
  12. ALBUTEROL [Concomitant]
     Active Substance: ALBUTEROL
     Dosage: UNK (ONE OR TWO PUFFS UPTO FOUR...)
     Route: 055
     Dates: start: 20230324

REACTIONS (1)
  - Orthostatic hypotension [Recovering/Resolving]
